FAERS Safety Report 12640617 (Version 1)
Quarter: 2016Q3

REPORT INFORMATION
  Report Type: Spontaneous
  Country: IT (occurrence: IT)
  Receive Date: 20160810
  Receipt Date: 20160810
  Transmission Date: 20161109
  Serious: Yes (Other)
  Sender: FDA-Public Use
  Company Number: IT-PFIZER INC-2016375536

PATIENT
  Age: 68 Year
  Sex: Female

DRUGS (1)
  1. ANZATAX [Suspect]
     Active Substance: PACLITAXEL
     Indication: UTERINE CANCER
     Dosage: 270 MG, CYCLIC
     Route: 042
     Dates: start: 20160721, end: 20160721

REACTIONS (2)
  - Choking sensation [Unknown]
  - Rash [Unknown]

NARRATIVE: CASE EVENT DATE: 20160721
